FAERS Safety Report 9655243 (Version 3)
Quarter: 2020Q2

REPORT INFORMATION
  Report Type: Spontaneous
  Country: US (occurrence: US)
  Receive Date: 20131029
  Receipt Date: 20200422
  Transmission Date: 20200714
  Serious: No
  Sender: FDA-Public Use
  Company Number: US-PURDUE-USA-2012-0086261

PATIENT
  Age: 58 Year
  Sex: Female

DRUGS (3)
  1. ZOFRAN [Concomitant]
     Active Substance: ONDANSETRON HYDROCHLORIDE
     Indication: NAUSEA
     Dosage: 8 MG, PRN
     Route: 048
  2. ZOFRAN [Concomitant]
     Active Substance: ONDANSETRON HYDROCHLORIDE
     Indication: VOMITING
  3. OXYCONTIN [Suspect]
     Active Substance: OXYCODONE HYDROCHLORIDE
     Indication: PAIN
     Dosage: 40 MG, Q12H
     Route: 048
     Dates: start: 20120421, end: 20120421

REACTIONS (8)
  - Nausea [Recovered/Resolved]
  - Lethargy [Recovered/Resolved]
  - Drug resistance [Unknown]
  - Pain [Unknown]
  - Drug ineffective [Unknown]
  - Therapeutic product effect increased [Unknown]
  - Euphoric mood [Recovered/Resolved]
  - Vomiting [Recovered/Resolved]

NARRATIVE: CASE EVENT DATE: 20120421
